FAERS Safety Report 7212858-1 (Version None)
Quarter: 2010Q4

REPORT INFORMATION
  Report Type: 
  Country: None (occurrence: None)
  Receive Date: 20101229
  Receipt Date: 20101214
  Transmission Date: 20110411
  Serious: Yes (Death, Other)
  Sender: FDA-Public Use
  Company Number: 012436

PATIENT
  Age: 61 Year
  Sex: Female

DRUGS (3)
  1. BUSULFEX [Suspect]
     Indication: STEM CELL TRANSPLANT
     Dosage: INTRAVENOUS
     Route: 042
  2. FLUDARBINE (FLUDARBINE) [Concomitant]
  3. CAMPATH [Concomitant]

REACTIONS (2)
  - ACUTE GRAFT VERSUS HOST DISEASE IN SKIN [None]
  - CARDIAC DEATH [None]
